FAERS Safety Report 10941215 (Version 2)
Quarter: 2015Q2

REPORT INFORMATION
  Report Type: Spontaneous
  Country: US (occurrence: US)
  Receive Date: 20150322
  Receipt Date: 20150524
  Transmission Date: 20150821
  Serious: No
  Sender: FDA-Public Use
  Company Number: US-JNJFOC-20140823618

PATIENT
  Age: 56 Year
  Sex: Female
  Weight: 79.38 kg

DRUGS (3)
  1. VICTOZA [Concomitant]
     Active Substance: LIRAGLUTIDE
     Indication: TYPE 2 DIABETES MELLITUS
     Route: 065
     Dates: start: 201406
  2. METFORMIN [Concomitant]
     Active Substance: METFORMIN HYDROCHLORIDE
     Indication: TYPE 2 DIABETES MELLITUS
     Route: 048
  3. INVOKANA [Suspect]
     Active Substance: CANAGLIFLOZIN
     Indication: TYPE 2 DIABETES MELLITUS
     Route: 048
     Dates: start: 201406, end: 20140823

REACTIONS (8)
  - Vaginal infection [Recovered/Resolved]
  - Wrong technique in drug usage process [Recovered/Resolved]
  - Urticaria [Recovered/Resolved]
  - Vulvovaginal pruritus [Not Recovered/Not Resolved]
  - Abnormal loss of weight [Not Recovered/Not Resolved]
  - Hypoglycaemia [Unknown]
  - Fungal infection [Recovered/Resolved]
  - Food craving [Unknown]

NARRATIVE: CASE EVENT DATE: 2014
